FAERS Safety Report 4798386-1 (Version None)
Quarter: 2005Q4

REPORT INFORMATION
  Report Type: 
  Country: None (occurrence: None)
  Receive Date: 20051014
  Receipt Date: 20051007
  Transmission Date: 20060501
  Serious: Yes (Other)
  Sender: FDA-Public Use
  Company Number: PHNU2005DE03394

PATIENT
  Sex: Male

DRUGS (2)
  1. AREDIA [Suspect]
     Indication: PLASMACYTOMA
     Dosage: UNK, UNK
     Route: 042
     Dates: end: 20020101
  2. BONDRONAT [Suspect]
     Indication: PLASMACYTOMA
     Dosage: 4 MG, UNK
     Route: 042
     Dates: start: 20020101, end: 20050912

REACTIONS (2)
  - JAW OPERATION [None]
  - OSTEONECROSIS [None]
